FAERS Safety Report 6618074-6 (Version None)
Quarter: 2010Q1

REPORT INFORMATION
  Report Type: 
  Country: None (occurrence: None)
  Receive Date: 20100308
  Receipt Date: 20100224
  Transmission Date: 20100710
  Serious: Yes (Hospitalization)
  Sender: FDA-Public Use
  Company Number: JP-ROCHE-605374

PATIENT
  Age: 44 Year
  Sex: Female

DRUGS (3)
  1. HERCEPTIN [Suspect]
     Indication: BREAST CANCER
     Dosage: ACCUMULATED DOSE 491 MG/ME2
     Route: 041
  2. ADRIACIN [Suspect]
     Indication: BREAST CANCER
     Dosage: ROUTE: INTRAVENOUS (NOT OTHERWISE SPECIFIED), ACCUMULATED DOSE: 234 MG/ME2
     Route: 042
  3. ENDOXAN [Concomitant]
     Dosage: ROUTE: INTRAVENOUS NOS
     Route: 042

REACTIONS (2)
  - ATRIOVENTRICULAR BLOCK COMPLETE [None]
  - CARDIAC FAILURE CONGESTIVE [None]
